FAERS Safety Report 12289785 (Version 1)
Quarter: 2016Q2

REPORT INFORMATION
  Report Type: Spontaneous
  Country: US (occurrence: None)
  Receive Date: 20160420
  Receipt Date: 20160420
  Transmission Date: 20160815
  Serious: Yes (Other)
  Sender: FDA-Public Use
  Company Number: None

PATIENT
  Age: 2 Month
  Sex: Female
  Weight: 64.41 kg

DRUGS (16)
  1. TEGRETOL [Concomitant]
     Active Substance: CARBAMAZEPINE
  2. FEXOFENADINE HCL [Concomitant]
     Active Substance: FEXOFENADINE HYDROCHLORIDE
  3. GUAIFENESIN. [Concomitant]
     Active Substance: GUAIFENESIN
  4. CLONIDINE HCL, 0.1 MG [Suspect]
     Active Substance: CLONIDINE HYDROCHLORIDE
     Indication: HYPERTENSION
     Route: 048
     Dates: start: 20160405, end: 20160414
  5. DOXYXYCLINE HYC [Concomitant]
  6. NEXIUM [Concomitant]
     Active Substance: ESOMEPRAZOLE MAGNESIUM
  7. PROLIA [Concomitant]
     Active Substance: DENOSUMAB
  8. DOCUSATE SODIUM. [Concomitant]
     Active Substance: DOCUSATE SODIUM
  9. CITRACAL PLUS MAGNESIUM [Concomitant]
     Active Substance: CALCIUM\MAGNESIUM\VITAMIN D\ZINC
  10. PHENOBARBITAL. [Concomitant]
     Active Substance: PHENOBARBITAL
  11. ZOLOFT [Concomitant]
     Active Substance: SERTRALINE HYDROCHLORIDE
  12. SYNTHROID [Concomitant]
     Active Substance: LEVOTHYROXINE SODIUM
  13. SPIRONOLACTONE. [Concomitant]
     Active Substance: SPIRONOLACTONE
  14. CENTRUM SILVER WOMEN [Concomitant]
  15. SINGULAIR [Concomitant]
     Active Substance: MONTELUKAST SODIUM
  16. AZOR [Concomitant]
     Active Substance: AMLODIPINE BESYLATE\OLMESARTAN MEDOXOMIL

REACTIONS (9)
  - Suicidal ideation [None]
  - Sedation [None]
  - Sleep disorder [None]
  - Cough [None]
  - Drug ineffective [None]
  - Lethargy [None]
  - Depression [None]
  - Dysphonia [None]
  - Dry throat [None]

NARRATIVE: CASE EVENT DATE: 20160412
